FAERS Safety Report 7446577-3 (Version None)
Quarter: 2011Q2

REPORT INFORMATION
  Report Type: 
  Country: None (occurrence: None)
  Receive Date: 20110429
  Receipt Date: 20110418
  Transmission Date: 20111010
  Serious: Yes (Hospitalization, Disabling, Other)
  Sender: FDA-Public Use
  Company Number: US-MERCK-1012USA01882

PATIENT
  Age: 66 Year
  Sex: Female

DRUGS (4)
  1. FOSAMAX [Suspect]
     Indication: OSTEOPOROSIS PROPHYLAXIS
     Route: 048
     Dates: start: 19990401, end: 20060604
  2. FOSAMAX [Suspect]
     Indication: OSTEOPENIA
     Route: 048
     Dates: start: 19990401, end: 20060604
  3. CENTRUM [Concomitant]
     Route: 048
  4. CENTRUM SILVER [Concomitant]
     Route: 048

REACTIONS (18)
  - HAEMATOCRIT DECREASED [None]
  - NERVOUSNESS [None]
  - FEMUR FRACTURE [None]
  - OSTEOPOROSIS [None]
  - FALL [None]
  - ANXIETY [None]
  - HYPERCHOLESTEROLAEMIA [None]
  - GINGIVAL DISORDER [None]
  - CARDIAC FAILURE [None]
  - HAEMOGLOBIN DECREASED [None]
  - HYPERTENSION [None]
  - HYPOTHYROIDISM [None]
  - HYPERLIPIDAEMIA [None]
  - STRESS FRACTURE [None]
  - LOW TURNOVER OSTEOPATHY [None]
  - BLOOD POTASSIUM ABNORMAL [None]
  - TOOTH DISORDER [None]
  - SINUS DISORDER [None]
